FAERS Safety Report 15809508 (Version 1)
Quarter: 2019Q1

REPORT INFORMATION
  Report Type: Spontaneous
  Country: US (occurrence: US)
  Receive Date: 20190111
  Receipt Date: 20190111
  Transmission Date: 20190417
  Serious: No
  Sender: FDA-Public Use
  Company Number: US-TAKEDA-2019TUS000501

PATIENT
  Age: 8 Decade
  Sex: Male

DRUGS (1)
  1. TRINTELLIX [Suspect]
     Active Substance: VORTIOXETINE HYDROBROMIDE
     Indication: PRODUCT USED FOR UNKNOWN INDICATION
     Dosage: UNK
     Route: 048

REACTIONS (6)
  - Wrong technique in product usage process [Recovered/Resolved]
  - Aspiration [Recovered/Resolved]
  - Choking [Recovered/Resolved]
  - Laryngospasm [Recovered/Resolved]
  - Foreign body in respiratory tract [Recovered/Resolved]
  - Vomiting [Recovered/Resolved]
